FAERS Safety Report 24364203 (Version 3)
Quarter: 2024Q4

REPORT INFORMATION
  Report Type: Spontaneous
  Country: US (occurrence: US)
  Receive Date: 20240925
  Receipt Date: 20241113
  Transmission Date: 20250114
  Serious: No
  Sender: NOVARTIS
  Company Number: US-002147023-NVSC2024US190894

PATIENT
  Sex: Female

DRUGS (2)
  1. COSENTYX [Suspect]
     Active Substance: SECUKINUMAB
     Indication: Psoriasis
     Dosage: UNK (INJECTION)
     Route: 050
     Dates: start: 20240312, end: 202407
  2. COSENTYX [Suspect]
     Active Substance: SECUKINUMAB
     Indication: Hidradenitis

REACTIONS (1)
  - Dysgeusia [Unknown]
